FAERS Safety Report 8828860 (Version 2)
Quarter: 2012Q4

REPORT INFORMATION
  Report Type: Report from Study
  Country: US (occurrence: US)
  Receive Date: 20121008
  Receipt Date: 20121030
  Transmission Date: 20130627
  Serious: Yes (Death, Hospitalization, Other)
  Sender: FDA-Public Use
  Company Number: US-ROCHE-1138229

PATIENT
  Age: 58 Year
  Sex: Male
  Weight: 55.2 kg

DRUGS (15)
  1. RITUXIMAB [Suspect]
     Indication: INTERMITTENT CLAUDICATION
     Route: 042
     Dates: start: 20120830, end: 20120830
  2. RITUXIMAB [Suspect]
     Route: 042
     Dates: start: 20120906, end: 20120906
  3. RITUXIMAB [Suspect]
     Route: 042
     Dates: start: 20120913, end: 20120913
  4. RITUXIMAB [Suspect]
     Route: 042
     Dates: start: 20120920, end: 20120920
  5. IMATINIB [Suspect]
     Indication: INTERMITTENT CLAUDICATION
     Route: 065
  6. PREDNISONE [Concomitant]
     Route: 048
  7. ACYCLOVIR [Concomitant]
     Route: 048
  8. BACTRIM (DS) [Concomitant]
     Route: 048
  9. CLOBETASOL [Concomitant]
     Route: 061
  10. DEXAMETHASONE [Concomitant]
     Route: 048
  11. WELLBUTRIN [Concomitant]
     Route: 048
  12. MULTIVITAMIN [Concomitant]
     Route: 065
  13. VITAMIN D [Concomitant]
     Route: 065
  14. RESTASIS [Concomitant]
     Dosage: one drop
     Route: 047
  15. OXYCODONE [Concomitant]
     Route: 065

REACTIONS (2)
  - Hypoxia [Fatal]
  - Hypotension [Unknown]
